FAERS Safety Report 9608617 (Version 1)
Quarter: 2013Q4

REPORT INFORMATION
  Report Type: Spontaneous
  Country: US (occurrence: US)
  Receive Date: 20131009
  Receipt Date: 20131009
  Transmission Date: 20140711
  Serious: Yes (Hospitalization, Other)
  Sender: FDA-Public Use
  Company Number: US-PFIZER INC-2013286601

PATIENT
  Age: 51 Year
  Sex: Male
  Weight: 83.9 kg

DRUGS (1)
  1. NEURONTIN [Suspect]
     Indication: FIBROMYALGIA
     Dosage: 900 MG (BY TAKING 3 CAPSULES OF 300MG), 2X/DAY
     Dates: start: 2011, end: 20130923

REACTIONS (4)
  - Road traffic accident [Unknown]
  - Upper limb fracture [Unknown]
  - Joint dislocation [Unknown]
  - Pain in extremity [Unknown]
